FAERS Safety Report 4289409-7 (Version None)
Quarter: 2004Q1

REPORT INFORMATION
  Report Type: 
  Country: None (occurrence: None)
  Receive Date: 20040206
  Receipt Date: 20040128
  Transmission Date: 20041129
  Serious: No
  Sender: FDA-Public Use
  Company Number: 2004-111911-NL

PATIENT
  Sex: Female

DRUGS (2)
  1. MIRTAZAPINE [Suspect]
     Dosage: DF
  2. SEROQUEL [Concomitant]

REACTIONS (3)
  - INFLUENZA LIKE ILLNESS [None]
  - LEUKOPENIA [None]
  - PYREXIA [None]
